FAERS Safety Report 5822111-6 (Version None)
Quarter: 2008Q3

REPORT INFORMATION
  Report Type: 
  Country: None (occurrence: None)
  Receive Date: 20080725
  Receipt Date: 20080715
  Transmission Date: 20090109
  Serious: Yes (Other)
  Sender: FDA-Public Use
  Company Number: US-JNJFOC-20070302693

PATIENT
  Sex: Female
  Weight: 54.43 kg

DRUGS (6)
  1. DURAGESIC-100 [Suspect]
     Indication: PAIN
     Dosage: 1X 100UG/HR PLUS 1X 50UG/HR PATCHES
     Route: 062
  2. SYNTHROID [Concomitant]
     Indication: THYROID DISORDER
     Route: 048
  3. SALAGEN [Concomitant]
     Route: 048
  4. WELLBUTRIN XL [Concomitant]
     Indication: DEPRESSION
     Route: 048
  5. PROVIGIL [Concomitant]
     Indication: SLEEP DISORDER
     Route: 048
  6. PERCOCET [Concomitant]
     Indication: BREAKTHROUGH PAIN
     Dosage: 10/650MG, AS NEEDED
     Route: 048

REACTIONS (7)
  - APPLICATION SITE IRRITATION [None]
  - CONVULSION [None]
  - DYSPNOEA [None]
  - HYPERHIDROSIS [None]
  - INADEQUATE ANALGESIA [None]
  - SNEEZING [None]
  - WRONG TECHNIQUE IN DRUG USAGE PROCESS [None]
